FAERS Safety Report 10913974 (Version 6)
Quarter: 2015Q2

REPORT INFORMATION
  Report Type: Spontaneous
  Country: US (occurrence: US)
  Receive Date: 20150313
  Receipt Date: 20150602
  Transmission Date: 20150821
  Serious: Yes (Disabling, Other)
  Sender: FDA-Public Use
  Company Number: US-PERRIGO-15US002588

PATIENT
  Age: 34 Year
  Sex: Female
  Weight: 48.53 kg

DRUGS (4)
  1. VIVANT [Concomitant]
     Indication: ATTENTION DEFICIT/HYPERACTIVITY DISORDER
     Dosage: UNK
     Route: 065
     Dates: start: 2014
  2. KLONOPIN [Concomitant]
     Active Substance: CLONAZEPAM
     Indication: ANXIETY
     Dosage: UNK
     Route: 065
     Dates: start: 2014
  3. ADDERALL [Concomitant]
     Active Substance: AMPHETAMINE ASPARTATE\AMPHETAMINE SULFATE\DEXTROAMPHETAMINE SACCHARATE\DEXTROAMPHETAMINE SULFATE
     Indication: ATTENTION DEFICIT/HYPERACTIVITY DISORDER
     Dosage: UNK
     Route: 065
     Dates: start: 2014
  4. LICE TREATMENT (PERMETHRIN) [Suspect]
     Active Substance: PERMETHRIN
     Indication: LICE INFESTATION
     Dosage: 1 APPLICATION, SINGLE
     Route: 061
     Dates: start: 20150221, end: 20150221

REACTIONS (12)
  - Eyelid margin crusting [Unknown]
  - Eye pain [Not Recovered/Not Resolved]
  - Corneal abrasion [Recovered/Resolved]
  - Vision blurred [Not Recovered/Not Resolved]
  - Eyelid oedema [Recovered/Resolved]
  - Visual acuity reduced [Not Recovered/Not Resolved]
  - Dry eye [Unknown]
  - Depression [Unknown]
  - Drug administration error [Unknown]
  - Chemical burns of eye [Unknown]
  - Eye irritation [Recovered/Resolved]
  - Anxiety [Not Recovered/Not Resolved]

NARRATIVE: CASE EVENT DATE: 2015
